FAERS Safety Report 4570606-8 (Version None)
Quarter: 2005Q1

REPORT INFORMATION
  Report Type: 
  Country: None (occurrence: None)
  Receive Date: 20050204
  Receipt Date: 20050125
  Transmission Date: 20050727
  Serious: Yes (Other)
  Sender: FDA-Public Use
  Company Number: GB-GLAXOSMITHKLINE-B0365857A

PATIENT
  Sex: Male

DRUGS (8)
  1. AVANDIA [Suspect]
     Dosage: 4MG PER DAY
     Route: 048
     Dates: start: 20041213
  2. PROCHLORPERAZINE [Concomitant]
     Dosage: 5MG PER DAY
     Route: 048
     Dates: start: 20050107
  3. FENOFIBRATE [Concomitant]
     Dosage: 150MG PER DAY
     Route: 048
  4. METFORMIN HCL [Concomitant]
     Dosage: 500MG PER DAY
     Route: 048
  5. GLICLAZIDE [Concomitant]
     Dosage: 50MG PER DAY
     Route: 048
  6. LISINOPRIL [Concomitant]
     Dosage: 5MG PER DAY
     Route: 048
  7. ASPIRIN [Concomitant]
     Dosage: 75MG PER DAY
     Route: 048
  8. ATENOLOL [Concomitant]
     Dosage: 50MG PER DAY
     Route: 048
     Dates: start: 20040303

REACTIONS (3)
  - ABDOMINAL DISTENSION [None]
  - ABDOMINAL PAIN [None]
  - SEPSIS [None]
